FAERS Safety Report 8780191 (Version 1)
Quarter: 2012Q4

REPORT INFORMATION
  Report Type: Spontaneous
  Country: US (occurrence: None)
  Receive Date: 20120831
  Receipt Date: 20120831
  Transmission Date: 20130627
  Serious: No
  Sender: FDA-Public Use
  Company Number: None

PATIENT
  Age: 47 Year
  Sex: Female
  Weight: 77.11 kg

DRUGS (4)
  1. SYMBICORT [Suspect]
     Indication: ASTHMA
     Dosage: 80/4.5 2wks (.0) intaledo
     Dates: start: 20110829, end: 20120702
  2. SYMBICORT [Suspect]
     Indication: ASTHMA
     Dosage: 160/4.5 2wk bid (0) indude
     Dates: start: 20120702, end: 20120720
  3. MULTI-MET [Concomitant]
  4. FE [Concomitant]

REACTIONS (1)
  - Arthralgia [None]
